FAERS Safety Report 7235918-8 (Version None)
Quarter: 2011Q1

REPORT INFORMATION
  Report Type: 
  Country: None (occurrence: None)
  Receive Date: 20110120
  Receipt Date: 20110114
  Transmission Date: 20110831
  Serious: Yes (Hospitalization)
  Sender: FDA-Public Use
  Company Number: A0794472A

PATIENT
  Age: 66 Year
  Sex: Male
  Weight: 143.6 kg

DRUGS (10)
  1. PROBENECID [Concomitant]
  2. GEMFIBROZIL [Concomitant]
  3. METFORMIN [Concomitant]
  4. GLYBURIDE [Concomitant]
  5. AVANDIA [Suspect]
     Dosage: 4MG TWICE PER DAY
     Route: 065
     Dates: start: 20000601, end: 20071201
  6. MICARDIS [Concomitant]
  7. VERAPAMIL [Concomitant]
  8. FLUOXETINE [Concomitant]
  9. ASPIRIN [Concomitant]
  10. INSULIN [Concomitant]

REACTIONS (5)
  - ATRIAL FIBRILLATION [None]
  - RENAL FAILURE [None]
  - CARDIOMYOPATHY [None]
  - SUPRAVENTRICULAR TACHYCARDIA [None]
  - CARDIAC FAILURE CONGESTIVE [None]
